FAERS Safety Report 6157404-9 (Version None)
Quarter: 2009Q2

REPORT INFORMATION
  Report Type: 
  Country: None (occurrence: None)
  Receive Date: 20090416
  Receipt Date: 20090404
  Transmission Date: 20091009
  Serious: Yes (Hospitalization)
  Sender: FDA-Public Use
  Company Number: US-PFIZER INC-2009186217

PATIENT
  Sex: Female
  Weight: 60.9 kg

DRUGS (13)
  1. SUNITINIB MALATE [Suspect]
     Indication: BREAST CANCER
     Dosage: 37.5 MG, 1X/DAY
     Route: 048
     Dates: start: 20090228
  2. GABAPENTIN [Concomitant]
     Indication: BREAST PAIN
     Dosage: 600 MG, 3X/DAY
  3. SYNTHROID [Concomitant]
     Indication: HYPOTHYROIDISM
     Dosage: 50 UG, 1X/DAY
  4. CLONIDINE [Concomitant]
     Indication: HYPERTENSION
     Dosage: 0.2 MG, 1X/DAY
  5. AVAPRO [Concomitant]
     Indication: HYPERTENSION
     Dosage: 300 MG, 1X/DAY
  6. METOPROLOL SUCCINATE [Concomitant]
     Indication: HYPERTENSION
     Dosage: 100 MG, 1X/DAY
  7. ATIVAN [Concomitant]
     Indication: ANXIETY DISORDER
     Dosage: 1 MG, EVERY 8 HOURS, PRN
  8. LEVAQUIN [Concomitant]
     Indication: BREAST DISCHARGE
     Dosage: 500 MG, 2X/DAY
  9. DARVOCET-N 100 [Concomitant]
     Indication: BREAST PAIN
     Dosage: 100 MG, Q4-6H, PRN
  10. COMPAZINE [Concomitant]
     Indication: NAUSEA
     Dosage: 10 MG, Q4-6H, PRN
  11. ALLOPURINOL [Concomitant]
     Indication: GOUT
     Dosage: 300 MG, 1X/DAY
  12. ZETIA [Concomitant]
     Indication: HYPERCHOLESTEROLAEMIA
     Dosage: 10 MG, 1X/DAY
  13. OS-CAL [Concomitant]
     Indication: MINERAL SUPPLEMENTATION
     Dosage: 500 MG, 1X/DAY

REACTIONS (3)
  - ABSCESS [None]
  - DEHYDRATION [None]
  - MUSCULAR WEAKNESS [None]
